FAERS Safety Report 8771676 (Version 1)
Quarter: 2012Q4

REPORT INFORMATION
  Report Type: 
  Country: US (occurrence: US)
  Receive Date: 20120905
  Receipt Date: 20120905
  Transmission Date: 20130627
  Serious: Yes (Death, Other)
  Sender: FDA-Public Use
  Company Number: US-ROCHE-CID000000002100869

PATIENT
  Sex: Female

DRUGS (9)
  1. AVASTIN [Suspect]
     Indication: LUNG NEOPLASM MALIGNANT
     Route: 065
     Dates: start: 200802, end: 20080606
  2. TARCEVA [Suspect]
     Indication: PRODUCT USED FOR UNKNOWN INDICATION
     Route: 065
  3. TAXOTERE [Concomitant]
     Route: 065
     Dates: start: 20080107
  4. CARBOPLATIN [Concomitant]
     Route: 065
     Dates: start: 20060714
  5. CARBOPLATIN [Concomitant]
     Route: 065
     Dates: start: 20080107
  6. CISPLATIN [Concomitant]
     Route: 065
     Dates: start: 200802, end: 20080607
  7. GEMZAR [Concomitant]
     Route: 065
     Dates: start: 20060714
  8. CYTOXAN [Concomitant]
     Route: 065
     Dates: start: 20070827
  9. ALIMTA [Concomitant]
     Dosage: 4 cycles
     Route: 065
     Dates: start: 20070511, end: 20070713

REACTIONS (4)
  - Death [Fatal]
  - Disease progression [Unknown]
  - Pleural effusion [Unknown]
  - Drug intolerance [Unknown]
